FAERS Safety Report 9843740 (Version 3)
Quarter: 2014Q2

REPORT INFORMATION
  Report Type: Spontaneous
  Country: DE (occurrence: DE)
  Receive Date: 20140126
  Receipt Date: 20140411
  Transmission Date: 20141212
  Serious: Yes (Other)
  Sender: FDA-Public Use
  Company Number: DE-AMGEN-DEUSP2014003813

PATIENT
  Age: 86 Year
  Sex: Female
  Weight: 50 kg

DRUGS (8)
  1. XGEVA [Suspect]
     Indication: METASTASES TO BONE
     Dosage: 120 MG, Q4WK
     Route: 058
     Dates: start: 201306, end: 201312
  2. XGEVA [Suspect]
     Route: 065
  3. XGEVA [Suspect]
     Route: 065
  4. XGEVA [Suspect]
     Route: 065
  5. XGEVA [Suspect]
     Route: 065
  6. CALCIUM D3                         /00944201/ [Concomitant]
     Route: 065
  7. LETROZOLE [Concomitant]
     Dosage: 2.5 UNK, QD
     Route: 065
  8. FENTANYL                           /00174602/ [Concomitant]
     Route: 065

REACTIONS (2)
  - Infection [Unknown]
  - Osteonecrosis of jaw [Unknown]
